FAERS Safety Report 19969036 (Version 1)
Quarter: 2021Q4

REPORT INFORMATION
  Report Type: Spontaneous
  Country: US (occurrence: US)
  Receive Date: 20211019
  Receipt Date: 20211019
  Transmission Date: 20220303
  Serious: No
  Sender: FDA-Public Use
  Company Number: US-PFIZER INC-202101081878

PATIENT
  Age: 73 Year
  Sex: Female
  Weight: 55.34 kg

DRUGS (3)
  1. IBRANCE [Suspect]
     Active Substance: PALBOCICLIB
     Indication: Breast cancer female
     Dosage: 100 MG, CYCLIC (ONE TABLET DAILY BY MOUTH FOR 3 WEEKS AND THEN 1 WEEK OFF)
     Route: 048
     Dates: start: 202012
  2. IBRANCE [Suspect]
     Active Substance: PALBOCICLIB
     Indication: Bone cancer
  3. CALCIUM CARBONATE\CHOLECALCIFEROL [Suspect]
     Active Substance: CALCIUM CARBONATE\CHOLECALCIFEROL
     Indication: Paraesthesia
     Dosage: 600 MG, 2X/DAY
     Route: 048

REACTIONS (4)
  - Musculoskeletal stiffness [Unknown]
  - Movement disorder [Unknown]
  - Weight decreased [Unknown]
  - Hypoaesthesia [Unknown]
